FAERS Safety Report 12135863 (Version 2)
Quarter: 2016Q3

REPORT INFORMATION
  Report Type: Report from Study
  Country: JP (occurrence: JP)
  Receive Date: 20160302
  Receipt Date: 20160805
  Transmission Date: 20161109
  Serious: Yes (Hospitalization, Other)
  Sender: FDA-Public Use
  Company Number: JP-SHIRE-JP201602082

PATIENT
  Age: 71 Year
  Sex: Female
  Weight: 43 kg

DRUGS (9)
  1. LANSOPRAZOLE. [Concomitant]
     Active Substance: LANSOPRAZOLE
     Indication: PROPHYLAXIS
     Dosage: UNK, UNKNOWN
     Route: 048
  2. 422 (ANAGRELIDE) [Suspect]
     Active Substance: ANAGRELIDE
     Dosage: 1.0 MG/DAY
     Route: 048
     Dates: start: 20150113, end: 20150126
  3. AZILVA [Concomitant]
     Active Substance: AZILSARTAN KAMEDOXOMIL
     Indication: BLOOD PRESSURE MANAGEMENT
     Dosage: UNK, UNKNOWN
     Route: 048
     Dates: start: 20150521
  4. 422 (ANAGRELIDE) [Suspect]
     Active Substance: ANAGRELIDE
     Dosage: 0.5 MG/DAY
     Route: 048
     Dates: start: 20150127, end: 20150209
  5. 422 (ANAGRELIDE) [Suspect]
     Active Substance: ANAGRELIDE
     Dosage: 1.5 MG/DAY ON ODD DAY AND 1.0 MG/DAY ON EVEN DAY
     Route: 048
     Dates: start: 20150602, end: 20150714
  6. AMLODIPINE [Concomitant]
     Active Substance: AMLODIPINE BESYLATE
     Indication: BLOOD PRESSURE MANAGEMENT
     Dosage: UNK, UNKNOWN
     Route: 048
     Dates: start: 20150421
  7. 422 (ANAGRELIDE) [Suspect]
     Active Substance: ANAGRELIDE
     Dosage: UNK
  8. 422 (ANAGRELIDE) [Suspect]
     Active Substance: ANAGRELIDE
     Indication: ESSENTIAL THROMBOCYTHAEMIA
     Dosage: 1.0 MG/DAY
     Route: 048
     Dates: start: 20150210, end: 20150601
  9. REBAMIPIDE [Concomitant]
     Active Substance: REBAMIPIDE
     Indication: PROPHYLAXIS
     Dosage: UNK, UNKNOWN
     Route: 048
     Dates: start: 20150421, end: 20150522

REACTIONS (7)
  - Hypertension [Recovered/Resolved]
  - Constipation [Recovering/Resolving]
  - Cervical radiculopathy [Unknown]
  - Thrombotic cerebral infarction [Recovered/Resolved with Sequelae]
  - Headache [Recovered/Resolved]
  - Spinal osteoarthritis [Unknown]
  - Dry skin [Recovered/Resolved]

NARRATIVE: CASE EVENT DATE: 20150127
